FAERS Safety Report 8550717-2 (Version None)
Quarter: 2012Q3

REPORT INFORMATION
  Report Type: 
  Country: None (occurrence: None)
  Receive Date: 20120730
  Receipt Date: 20120719
  Transmission Date: 20120928
  Serious: Yes (Disabling)
  Sender: FDA-Public Use
  Company Number: GB-GLAXOSMITHKLINE-B0815695A

PATIENT
  Age: 69 Year
  Sex: Male

DRUGS (6)
  1. RAMIPRIL [Concomitant]
  2. AMOXICILLIN AND CLAVULANATE POTASSIUM [Suspect]
     Indication: TOOTH INFECTION
     Dosage: 3IUAX PER DAY
     Dates: start: 20120416
  3. METRONIDAZOLE [Suspect]
     Indication: TOOTH INFECTION
     Dates: start: 20120416
  4. CLINDAMYCIN [Suspect]
     Dates: start: 20120426
  5. SIMVASTATIN [Concomitant]
  6. BETAHISTINE DIHYDROCHLORIDE [Concomitant]

REACTIONS (1)
  - HEPATITIS ACUTE [None]
